FAERS Safety Report 7753450-X (Version None)
Quarter: 2011Q3

REPORT INFORMATION
  Report Type: 
  Country: None (occurrence: None)
  Receive Date: 20110915
  Receipt Date: 20110902
  Transmission Date: 20111222
  Serious: Yes (Hospitalization, Other)
  Sender: FDA-Public Use
  Company Number: US-ELI_LILLY_AND_COMPANY-US201102007060

PATIENT
  Sex: Female
  Weight: 75.283 kg

DRUGS (23)
  1. FORTEO [Suspect]
     Dosage: 20 UG, QD
     Route: 058
  2. B 1-6-12 [Concomitant]
     Dosage: UNK, UNKNOWN
     Route: 065
  3. BENEFIBER [Concomitant]
     Dosage: UNK, UNKNOWN
     Route: 065
  4. VESICARE [Concomitant]
     Indication: URINARY INCONTINENCE
  5. HUMIRA [Concomitant]
  6. CYMBALTA [Concomitant]
     Dosage: 30 MG, QD
     Route: 065
  7. NEXIUM [Concomitant]
     Dosage: UNK, UNKNOWN
     Route: 065
  8. FOLIC ACID [Concomitant]
  9. FORTEO [Suspect]
     Dosage: 20 UG, QD
     Route: 058
  10. SIMVASTATIN [Concomitant]
     Dosage: UNK, UNKNOWN
     Route: 065
  11. NIACIN [Concomitant]
     Dosage: UNK, UNKNOWN
     Route: 065
  12. ASPIRIN [Concomitant]
     Dosage: UNK, UNKNOWN
     Route: 065
  13. COQ10 [Concomitant]
     Dosage: UNK, UNKNOWN
     Route: 065
  14. INSULIN [Concomitant]
  15. FORTEO [Suspect]
     Indication: OSTEOPOROSIS
     Dosage: 20 UG, DAILY (1/D)
     Route: 058
     Dates: start: 20110120
  16. FORTEO [Suspect]
     Dosage: 20 UG, QD
     Route: 058
  17. PREDNISONE [Concomitant]
     Indication: RHEUMATOID ARTHRITIS
     Dosage: UNK, UNKNOWN
     Route: 065
  18. METHOTREXATE [Concomitant]
     Dosage: UNK, UNKNOWN
     Route: 065
  19. LEUCOVORIN CALCIUM [Concomitant]
     Dosage: UNK, UNKNOWN
     Route: 065
  20. LOTREL [Concomitant]
     Dosage: UNK, UNKNOWN
     Route: 065
  21. VITAMIN D [Concomitant]
     Dosage: UNK, UNKNOWN
     Route: 065
  22. CALCIUM CARBONATE [Concomitant]
     Dosage: UNK, UNKNOWN
     Route: 065
  23. HUMULIN 70/30 [Concomitant]

REACTIONS (11)
  - INFLAMMATION [None]
  - PAIN [None]
  - DYSSTASIA [None]
  - MOVEMENT DISORDER [None]
  - SPINAL FRACTURE [None]
  - BACK PAIN [None]
  - PROCEDURAL PAIN [None]
  - MEDICATION ERROR [None]
  - OSTEOPOROTIC FRACTURE [None]
  - INCORRECT DRUG ADMINISTRATION DURATION [None]
  - NEURITIS [None]
